FAERS Safety Report 22161728 (Version 1)
Quarter: 2023Q1

REPORT INFORMATION
  Report Type: Spontaneous
  Country: US (occurrence: US)
  Receive Date: 20230331
  Receipt Date: 20230331
  Transmission Date: 20230417
  Serious: No
  Sender: FDA-Public Use
  Company Number: US-AMGEN-USASP2023052124

PATIENT
  Sex: Male
  Weight: 2.481 kg

DRUGS (1)
  1. ENBREL [Suspect]
     Active Substance: ETANERCEPT
     Indication: Product used for unknown indication
     Dosage: UNK
     Route: 065

REACTIONS (4)
  - Infection susceptibility increased [Unknown]
  - Jaundice [Unknown]
  - Transient tachypnoea of the newborn [Unknown]
  - Small for dates baby [Unknown]

NARRATIVE: CASE EVENT DATE: 20220101
